FAERS Safety Report 21534157 (Version 1)
Quarter: 2022Q4

REPORT INFORMATION
  Report Type: Spontaneous
  Country: US (occurrence: US)
  Receive Date: 20221101
  Receipt Date: 20221101
  Transmission Date: 20230112
  Serious: No
  Sender: FDA-Public Use
  Company Number: US-TEVA-2022-US-2817121

PATIENT
  Age: 62 Year
  Sex: Female

DRUGS (1)
  1. VENLAFAXINE HYDROCHLORIDE [Suspect]
     Active Substance: VENLAFAXINE HYDROCHLORIDE
     Indication: Product used for unknown indication
     Dosage: STRENGTH: 37.5 MG
     Dates: start: 2007

REACTIONS (4)
  - Antidepressant discontinuation syndrome [Unknown]
  - Agitation [Unknown]
  - Energy increased [Unknown]
  - Sensory loss [Unknown]
